FAERS Safety Report 9509138 (Version 1)
Quarter: 2013Q1

REPORT INFORMATION
  Report Type: Spontaneous
  Country: US (occurrence: None)
  Receive Date: 20130305
  Receipt Date: 20130305
  Transmission Date: 20140127
  Serious: Yes (Hospitalization)
  Sender: FDA-Public Use
  Company Number: 163-21880-12022902

PATIENT
  Age: 85 Year
  Sex: Female

DRUGS (9)
  1. REVLIMID (LENALIDOMIDE) (25 MILLIGRAM, CAPSULES) [Suspect]
     Indication: PLASMA CELL MYELOMA
     Dosage: X 21
     Route: 048
     Dates: start: 20110407
  2. ALPRAZOLAM (ALPRAZOLAM) [Concomitant]
  3. AMITRIPTYLINE HCL (AMITRIPTLINE HYDROCHLORIDE) [Concomitant]
  4. AMLODIPINE BESYLATE (AMLODIPINE BESILATE) [Concomitant]
  5. ASPIRIN (ACETYLSALICYLIC ACID) [Concomitant]
  6. BIDIL (BIDIL) [Concomitant]
  7. CLONIDINE HCL (CLONIDINE HDYROCHLORIDE) [Concomitant]
  8. COD LIVER OIL (COD-LIVER OIL) [Concomitant]
  9. CYMBALTA (DULOXETINE HYDROCHLORIDE) [Concomitant]

REACTIONS (1)
  - Asthenia [None]
